FAERS Safety Report 19748763 (Version 4)
Quarter: 2022Q3

REPORT INFORMATION
  Report Type: Spontaneous
  Country: PT (occurrence: PT)
  Receive Date: 20210826
  Receipt Date: 20220825
  Transmission Date: 20221026
  Serious: Yes (Other)
  Sender: FDA-Public Use
  Company Number: PT-MLMSERVICE-20210727-3019284-1

PATIENT
  Age: 43 Year
  Sex: Female

DRUGS (5)
  1. ZIPRASIDONE HYDROCHLORIDE [Suspect]
     Active Substance: ZIPRASIDONE HYDROCHLORIDE
     Indication: Bipolar disorder
     Dosage: 2 DOSES AFTER LUNCH AND DINNER
     Route: 065
  2. ZIPRASIDONE HYDROCHLORIDE [Suspect]
     Active Substance: ZIPRASIDONE HYDROCHLORIDE
     Indication: Mania
  3. DIAZEPAM [Concomitant]
     Active Substance: DIAZEPAM
     Indication: Mania
     Dosage: 20 MG, 1X/DAY
  4. VALPROIC ACID [Concomitant]
     Active Substance: VALPROIC ACID
     Indication: Mania
     Dosage: TITRATED
  5. VALPROIC ACID [Concomitant]
     Active Substance: VALPROIC ACID
     Indication: Bipolar disorder

REACTIONS (2)
  - Drug intolerance [Unknown]
  - Extrapyramidal disorder [Unknown]
